FAERS Safety Report 5192293-0 (Version None)
Quarter: 2006Q4

REPORT INFORMATION
  Report Type: 
  Country: None (occurrence: None)
  Receive Date: 20061227
  Receipt Date: 20061207
  Transmission Date: 20070319
  Serious: Yes (Hospitalization, Other)
  Sender: FDA-Public Use
  Company Number: US-KINGPHARMUSA00001-K200601552

PATIENT
  Age: 84 Year
  Sex: Female

DRUGS (7)
  1. ALTACE [Suspect]
     Indication: HYPERTENSION
     Dosage: 2.5 MG, QD
     Route: 048
     Dates: start: 20041022, end: 20051006
  2. ALTACE [Suspect]
     Dosage: 2.5 MG, BID
     Route: 048
     Dates: start: 20051007, end: 20051024
  3. ALTACE [Suspect]
     Dosage: 2.5 MG, QD
     Dates: start: 20051025
  4. PLAVIX [Concomitant]
     Indication: ARTERIOSCLEROSIS
     Dosage: 75 MG, UNK
     Route: 048
  5. PRAVASTATIN [Concomitant]
     Indication: ARTERIOSCLEROSIS
     Dosage: 10 MG, UNK
     Route: 048
  6. LEVOTHYROXINE SODIUM [Concomitant]
     Indication: HYPOTHYROIDISM
     Dosage: 100 UG, UNK
     Route: 048
  7. ISOKET 20 [Concomitant]
     Indication: CORONARY ARTERY DISEASE
     Dosage: 20 MG, UNK
     Route: 048

REACTIONS (5)
  - BLOOD PRESSURE INCREASED [None]
  - FALL [None]
  - HYPOTENSION [None]
  - SYNCOPE [None]
  - WOUND DEHISCENCE [None]
